FAERS Safety Report 7980071-6 (Version None)
Quarter: 2011Q4

REPORT INFORMATION
  Report Type: 
  Country: None (occurrence: None)
  Receive Date: 20111208
  Receipt Date: 20111202
  Transmission Date: 20120403
  Serious: Yes (Hospitalization, Other)
  Sender: FDA-Public Use
  Company Number: 2011SP005927

PATIENT
  Age: 33 Year
  Sex: Female
  Weight: 70.3075 kg

DRUGS (3)
  1. NUVARING [Suspect]
     Indication: DYSMENORRHOEA
     Dosage: TO RELIEVE PMS SYMPTOMS
  2. NUVARING [Suspect]
     Indication: CONTRACEPTION
     Dosage: TO RELIEVE PMS SYMPTOMS
  3. NUVARING [Suspect]
     Indication: PREMENSTRUAL SYNDROME
     Dosage: TO RELIEVE PMS SYMPTOMS

REACTIONS (21)
  - UTERINE LEIOMYOMA [None]
  - FALL [None]
  - COAGULATION FACTOR VIII LEVEL INCREASED [None]
  - NECK PAIN [None]
  - NAUSEA [None]
  - MUSCULOSKELETAL PAIN [None]
  - HYPERCOAGULATION [None]
  - PANIC DISORDER [None]
  - PROTEIN C INCREASED [None]
  - CHEST PAIN [None]
  - BREAST DISCHARGE [None]
  - FOOT FRACTURE [None]
  - DEEP VEIN THROMBOSIS [None]
  - PSORIASIS [None]
  - OVARIAN CYST [None]
  - IMPAIRED WORK ABILITY [None]
  - INTERNATIONAL NORMALISED RATIO INCREASED [None]
  - TEMPERATURE INTOLERANCE [None]
  - HAEMORRHOIDS [None]
  - IRRITABLE BOWEL SYNDROME [None]
  - HYPERLIPIDAEMIA [None]
